FAERS Safety Report 8538049-X (Version None)
Quarter: 2012Q3

REPORT INFORMATION
  Report Type: 
  Country: None (occurrence: None)
  Receive Date: 20120725
  Receipt Date: 20120331
  Transmission Date: 20120928
  Serious: Yes (Hospitalization)
  Sender: FDA-Public Use
  Company Number: GB-BAXTER-2012BAX002341

PATIENT
  Age: 73 Year
  Sex: Male
  Weight: 78.8 kg

DRUGS (9)
  1. DIANEAL [Suspect]
     Route: 033
  2. EXTRANEAL [Suspect]
     Route: 033
     Dates: start: 20070811
  3. DIANEAL [Suspect]
     Route: 033
  4. DIANEAL [Suspect]
  5. VITAMIN D [Concomitant]
  6. INSULIN [Concomitant]
  7. EPOGEN [Concomitant]
  8. EXTRANEAL [Suspect]
  9. DIANEAL [Suspect]

REACTIONS (1)
  - HYPERSENSITIVITY [None]
